FAERS Safety Report 9143594 (Version 1)
Quarter: 2013Q1

REPORT INFORMATION
  Report Type: Spontaneous
  Country: IT (occurrence: IT)
  Receive Date: 20130306
  Receipt Date: 20130306
  Transmission Date: 20140127
  Serious: Yes (Other)
  Sender: FDA-Public Use
  Company Number: IT-ASTRAZENECA-2013SE14228

PATIENT
  Age: 13208 Day
  Sex: Male

DRUGS (9)
  1. MEROPENEM [Suspect]
     Indication: KLEBSIELLA INFECTION
     Route: 042
     Dates: start: 20121205, end: 20121226
  2. TIGECYCLINE [Suspect]
     Indication: KLEBSIELLA INFECTION
     Route: 042
     Dates: start: 20121205, end: 20121224
  3. GENTAMICIN [Suspect]
     Indication: KLEBSIELLA INFECTION
     Route: 042
     Dates: start: 20121205, end: 20121226
  4. KCL RETARD [Concomitant]
     Dates: start: 20121022, end: 20121220
  5. AMLODIPINE [Concomitant]
     Dates: start: 20121127, end: 20121224
  6. RAMIPRIL [Concomitant]
  7. POTASSIUM CANRENOATE [Concomitant]
  8. CARVEDILOL [Concomitant]
  9. SIMVASTATIN [Concomitant]

REACTIONS (1)
  - Electrocardiogram QT prolonged [Recovered/Resolved]
